FAERS Safety Report 13506445 (Version 1)
Quarter: 2017Q2

REPORT INFORMATION
  Report Type: Spontaneous
  Country: US (occurrence: US)
  Receive Date: 20170502
  Receipt Date: 20170502
  Transmission Date: 20170830
  Serious: No
  Sender: FDA-Public Use
  Company Number: US-ROCHE-1224099

PATIENT
  Sex: Female

DRUGS (1)
  1. AVASTIN [Suspect]
     Active Substance: BEVACIZUMAB
     Indication: ANAPLASTIC OLIGODENDROGLIOMA
     Route: 065
     Dates: start: 2010

REACTIONS (4)
  - Tooth abscess [Recovered/Resolved]
  - Tooth infection [Not Recovered/Not Resolved]
  - Dry mouth [Not Recovered/Not Resolved]
  - Dental caries [Not Recovered/Not Resolved]
